FAERS Safety Report 10770523 (Version 2)
Quarter: 2015Q1

REPORT INFORMATION
  Report Type: Spontaneous
  Country: US (occurrence: None)
  Receive Date: 20150206
  Receipt Date: 20150206
  Transmission Date: 20150721
  Serious: Yes (Hospitalization)
  Sender: FDA-Public Use
  Company Number: HYP201307-000038

PATIENT
  Age: 16 Year
  Sex: Female
  Weight: 52.3 kg

DRUGS (4)
  1. OSCAL [Concomitant]
     Active Substance: CALCIUM CARBONATE
  2. RAVICTI [Suspect]
     Active Substance: GLYCEROL PHENYLBUTYRATE
     Indication: UREA CYCLE ENZYME DEFICIENCY
     Route: 048
     Dates: start: 20130515
  3. CITRULLINE [Concomitant]
     Active Substance: CITRULLINE
  4. VITAMIN B12 [Concomitant]
     Active Substance: CYANOCOBALAMIN

REACTIONS (8)
  - Vomiting [None]
  - Decreased appetite [None]
  - Weight decreased [None]
  - Abdominal pain [None]
  - Somnolence [None]
  - Dysgeusia [None]
  - Hyperammonaemic crisis [None]
  - Headache [None]

NARRATIVE: CASE EVENT DATE: 201305
